FAERS Safety Report 4745016-0 (Version None)
Quarter: 2005Q3

REPORT INFORMATION
  Report Type: 
  Country: None (occurrence: None)
  Receive Date: 20050811
  Receipt Date: 20050804
  Transmission Date: 20060218
  Serious: Yes (Hospitalization, Other)
  Sender: FDA-Public Use
  Company Number: HQWYE187013JUL05

PATIENT
  Age: 73 Year
  Sex: Male

DRUGS (3)
  1. OROKEN (CEFIXIME) [Suspect]
     Indication: PROSTATITIS
     Dosage: ORAL
     Route: 048
     Dates: start: 20050429, end: 20050505
  2. CIPROFLOXACIN HCL [Suspect]
     Indication: PROSTATITIS
     Dosage: 500 MG 2X PER 1 DAY ORAL
     Route: 048
     Dates: start: 20050429, end: 20050505
  3. ZELITREX (VALACICLOVIR) [Suspect]
     Indication: HERPES SIMPLEX
     Dosage: ORAL
     Route: 048
     Dates: start: 20050428, end: 20050502

REACTIONS (2)
  - BLOOD UREA INCREASED [None]
  - VASCULAR PURPURA [None]
